FAERS Safety Report 5877270-6 (Version None)
Quarter: 2008Q3

REPORT INFORMATION
  Report Type: 
  Country: None (occurrence: None)
  Receive Date: 20080908
  Receipt Date: 20080829
  Transmission Date: 20090109
  Serious: Yes (Life-Threatening, Hospitalization)
  Sender: FDA-Public Use
  Company Number: TCI2008A03541

PATIENT
  Age: 61 Year
  Sex: Male

DRUGS (10)
  1. ACTOS [Suspect]
     Indication: TYPE 2 DIABETES MELLITUS
     Dosage: 15 MG (15 MG, 1 IN 1 D) PER ORAL
     Route: 048
     Dates: start: 20050711, end: 20050725
  2. CANDESARTAN CILEXETIL [Concomitant]
  3. TAKEPRON OD TABLETS 30 (LANSOPRAZOLE) [Concomitant]
  4. ASPIRIN [Concomitant]
  5. WARFARIN (WARFARIN POTASSIUM) [Concomitant]
  6. SELBEX (TEPRENONE) [Concomitant]
  7. KINEDAK (EPALRESTAT) [Concomitant]
  8. NOVORAPID (INSULIN ASPART) [Concomitant]
  9. LANTUS [Concomitant]
  10. HERBAL EXTRACT NOS [Concomitant]

REACTIONS (22)
  - ANOREXIA [None]
  - ARTERIOSCLEROSIS [None]
  - BLOOD PRESSURE DECREASED [None]
  - CLOSTRIDIUM DIFFICILE TOXIN TEST POSITIVE [None]
  - CONTRAST MEDIA ALLERGY [None]
  - CONVULSION [None]
  - GALLBLADDER DISORDER [None]
  - HEPATIC ATROPHY [None]
  - HEPATIC STEATOSIS [None]
  - HEPATITIS ACUTE [None]
  - HYPERLIPIDAEMIA [None]
  - ISCHAEMIC HEPATITIS [None]
  - MALAISE [None]
  - NAUSEA [None]
  - PANCREATIC CYST [None]
  - PANCREATIC PSEUDOCYST [None]
  - PANCREATITIS ACUTE [None]
  - PLATELET COUNT DECREASED [None]
  - PNEUMONIA STAPHYLOCOCCAL [None]
  - PRURITUS [None]
  - PSEUDOMEMBRANOUS COLITIS [None]
  - PYREXIA [None]
